FAERS Safety Report 6631852-2 (Version None)
Quarter: 2010Q1

REPORT INFORMATION
  Report Type: 
  Country: None (occurrence: None)
  Receive Date: 20100312
  Receipt Date: 20100305
  Transmission Date: 20100710
  Serious: Yes (Death)
  Sender: FDA-Public Use
  Company Number: JP-ROCHE-688587

PATIENT
  Sex: Male
  Weight: 51 kg

DRUGS (11)
  1. AVASTIN [Suspect]
     Indication: LUNG ADENOCARCINOMA
     Route: 041
     Dates: start: 20100104, end: 20100215
  2. TAXOTERE [Concomitant]
     Dosage: DRUG: TAXOTERE(DOCETAXEL HYDRATE)
     Route: 041
     Dates: start: 20091116, end: 20100201
  3. VESICARE [Concomitant]
     Route: 048
     Dates: start: 20091215, end: 20100222
  4. ALLELOCK [Concomitant]
     Route: 048
     Dates: start: 20091016, end: 20100222
  5. LENDORMIN [Concomitant]
     Dosage: DRUG: LENDORMIN D
     Route: 048
     Dates: start: 20090410, end: 20100222
  6. NORVASC [Concomitant]
     Route: 048
     Dates: start: 20090724, end: 20100222
  7. ACINON [Concomitant]
     Route: 048
     Dates: start: 20091221, end: 20100222
  8. MUCOSOLVAN [Concomitant]
     Dosage: DRUG: MUCOSOLVAN L
     Route: 048
     Dates: start: 20080411, end: 20100222
  9. EVAMYL [Concomitant]
     Route: 048
     Dates: start: 20081024, end: 20100222
  10. MUCODYNE [Concomitant]
     Route: 048
     Dates: start: 20081114, end: 20100222
  11. DILTIAZEM HYDROCHLORIDE [Concomitant]
     Dosage: DOSE FORM: SUSTAINED RELEASE CAPSULE
     Route: 048
     Dates: start: 20091225, end: 20100222

REACTIONS (4)
  - EPISTAXIS [None]
  - IDIOPATHIC PULMONARY FIBROSIS [None]
  - PYREXIA [None]
  - RESPIRATORY TRACT INFECTION [None]
